FAERS Safety Report 8449839-6 (Version None)
Quarter: 2012Q2

REPORT INFORMATION
  Report Type: 
  Country: None (occurrence: None)
  Receive Date: 20120620
  Receipt Date: 20120608
  Transmission Date: 20120825
  Serious: Yes (Hospitalization)
  Sender: FDA-Public Use
  Company Number: US-ELI_LILLY_AND_COMPANY-US201206003809

PATIENT
  Sex: Male

DRUGS (2)
  1. ZYPREXA RELPREVV [Suspect]
     Dosage: UNK
     Dates: start: 20120509
  2. ZYPREXA ZYDIS [Suspect]
     Dosage: 40 MG, QD

REACTIONS (2)
  - HOSPITALISATION [None]
  - OVERDOSE [None]
